FAERS Safety Report 4955345-3 (Version None)
Quarter: 2006Q1

REPORT INFORMATION
  Report Type: 
  Country: None (occurrence: None)
  Receive Date: 20060328
  Receipt Date: 20060317
  Transmission Date: 20060701
  Serious: Yes (Life-Threatening, Hospitalization)
  Sender: FDA-Public Use
  Company Number: US-JNJFOC-20060304851

PATIENT
  Sex: Male
  Weight: 80.29 kg

DRUGS (7)
  1. TYLENOL (CAPLET) [Suspect]
  2. TYLENOL (CAPLET) [Suspect]
     Indication: PAIN
  3. ASPIRIN [Suspect]
     Indication: PROPHYLAXIS
     Route: 048
  4. SUTENT [Suspect]
     Route: 048
  5. NAPROSYN [Suspect]
     Indication: PAIN
     Route: 048
  6. SANDOSTATIN [Concomitant]
  7. COMPAZINE [Concomitant]
     Indication: NAUSEA

REACTIONS (1)
  - GASTROINTESTINAL HAEMORRHAGE [None]
